FAERS Safety Report 9347781 (Version 1)
Quarter: 2013Q2

REPORT INFORMATION
  Report Type: Spontaneous
  Country: US (occurrence: None)
  Receive Date: 20130612
  Receipt Date: 20130612
  Transmission Date: 20140414
  Serious: Yes (Death)
  Sender: FDA-Public Use
  Company Number: None

PATIENT
  Age: 50 Year
  Sex: Female
  Weight: 207.7 kg

DRUGS (1)
  1. HYDROMORPHONE [Suspect]
     Indication: PAIN
     Dosage: HYDROMORPHONE 0.2 MG/ML  0.6 MG PER DEMAND PCA?05/29/2013 AT 1:15AM TO 6PM
     Dates: start: 20130529

REACTIONS (9)
  - Unresponsive to stimuli [None]
  - Hypoxia [None]
  - Convulsion [None]
  - Cardio-respiratory arrest [None]
  - No therapeutic response [None]
  - Acute respiratory failure [None]
  - Chronic respiratory failure [None]
  - Hyperventilation [None]
  - Respiratory depression [None]
